FAERS Safety Report 15152843 (Version 1)
Quarter: 2018Q3

REPORT INFORMATION
  Report Type: Spontaneous
  Country: JP (occurrence: JP)
  Receive Date: 20180717
  Receipt Date: 20180717
  Transmission Date: 20181010
  Serious: Yes (Hospitalization, Other)
  Sender: FDA-Public Use
  Company Number: JP-MACLEODS PHARMACEUTICALS US LTD-MAC2018015007

PATIENT

DRUGS (9)
  1. QUETIAPINE 50 MG [Suspect]
     Active Substance: QUETIAPINE
     Indication: MENTAL IMPAIRMENT
     Dosage: 50 MILLIGRAM, QD ON POST?OPERATIVE DAY (POD)30
     Route: 065
  2. FUROSEMIDE. [Concomitant]
     Active Substance: FUROSEMIDE
     Indication: PRODUCT USED FOR UNKNOWN INDICATION
     Dosage: INFUSION INTRAVENOUS DRIP
     Route: 042
  3. MEROPENEM. [Concomitant]
     Active Substance: MEROPENEM
     Indication: PNEUMONIA ASPIRATION
     Dosage: 2?3G/DAY
  4. CARPERITIDE [Concomitant]
     Active Substance: CARPERITIDE
     Indication: PRODUCT USED FOR UNKNOWN INDICATION
     Dosage: INFUSION INTRAVENOUS DRIP
     Route: 042
  5. CEFEPIME [Concomitant]
     Active Substance: CEFEPIME HYDROCHLORIDE
     Indication: PRODUCT USED FOR UNKNOWN INDICATION
     Dosage: UNK UNK, QD
     Route: 065
  6. QUETIAPINE 50 MG [Interacting]
     Active Substance: QUETIAPINE
     Indication: DELIRIUM
     Dosage: 150 MILLIGRAM, QD ON POST?OPERATIVE DAY (POD)35
     Route: 065
  7. BENIDIPINE [Interacting]
     Active Substance: BENIDIPINE
     Indication: PRODUCT USED FOR UNKNOWN INDICATION
     Dosage: 2 MILLIGRAM, QD
     Route: 065
  8. TOLVAPTAN [Interacting]
     Active Substance: TOLVAPTAN
     Indication: ACUTE KIDNEY INJURY
     Dosage: 7.5 MILLIGRAM, QD, POD 43
     Route: 065
  9. DOBUTAMINE [Concomitant]
     Active Substance: DOBUTAMINE\DOBUTAMINE HYDROCHLORIDE
     Indication: PRODUCT USED FOR UNKNOWN INDICATION
     Dosage: INFUSION INTRAVENOUS DRIP
     Route: 042

REACTIONS (5)
  - Nephropathy toxic [Recovered/Resolved]
  - Renal tubular necrosis [Recovered/Resolved]
  - Acute kidney injury [Recovered/Resolved]
  - Drug interaction [Recovered/Resolved]
  - Weight increased [Unknown]
